FAERS Safety Report 23272657 (Version 1)
Quarter: 2023Q4

REPORT INFORMATION
  Report Type: Spontaneous
  Country: US (occurrence: US)
  Receive Date: 20231207
  Receipt Date: 20231207
  Transmission Date: 20240109
  Serious: No
  Sender: FDA-Public Use
  Company Number: US-BIOGEN-2022BI01160890

PATIENT
  Sex: Female

DRUGS (11)
  1. VUMERITY [Suspect]
     Active Substance: DIROXIMEL FUMARATE
     Indication: Multiple sclerosis
     Route: 050
     Dates: start: 20210618
  2. VUMERITY [Suspect]
     Active Substance: DIROXIMEL FUMARATE
     Dosage: STARTING DOSE
     Route: 050
     Dates: start: 20210620, end: 20210626
  3. VUMERITY [Suspect]
     Active Substance: DIROXIMEL FUMARATE
     Dosage: MAINTENANCE DOSE
     Route: 050
     Dates: start: 20210627
  4. COVID-19 VACCINE NOS [Suspect]
     Active Substance: COVID-19 VACCINE NOS
     Indication: COVID-19 prophylaxis
     Route: 050
  5. SUMATRIPTAN SUCCINATE [Concomitant]
     Active Substance: SUMATRIPTAN SUCCINATE
     Route: 050
  6. DOXYCYCLINE HYCLATE [Concomitant]
     Active Substance: DOXYCYCLINE HYCLATE
     Route: 050
  7. TOPAMAX [Concomitant]
     Active Substance: TOPIRAMATE
     Route: 050
  8. BOTOX [Concomitant]
     Active Substance: ONABOTULINUMTOXINA
     Route: 050
  9. LIDOCAINE [Concomitant]
     Active Substance: LIDOCAINE
     Route: 050
  10. PHENTERMINE [Concomitant]
     Active Substance: PHENTERMINE
     Route: 050
  11. MODAFINIL [Concomitant]
     Active Substance: MODAFINIL
     Route: 050

REACTIONS (12)
  - Pain of skin [Not Recovered/Not Resolved]
  - Immune system disorder [Not Recovered/Not Resolved]
  - Multiple sclerosis relapse [Unknown]
  - COVID-19 [Recovered/Resolved]
  - Immunisation reaction [Recovered/Resolved]
  - White blood cell count decreased [Unknown]
  - Red blood cell count decreased [Unknown]
  - Rash pruritic [Unknown]
  - Skin exfoliation [Not Recovered/Not Resolved]
  - Skin lesion [Not Recovered/Not Resolved]
  - Herpes zoster [Not Recovered/Not Resolved]
  - Pruritus [Not Recovered/Not Resolved]
